FAERS Safety Report 16776976 (Version 1)
Quarter: 2019Q3

REPORT INFORMATION
  Report Type: Spontaneous
  Country: US (occurrence: US)
  Receive Date: 20190905
  Receipt Date: 20190905
  Transmission Date: 20191005
  Serious: No
  Sender: FDA-Public Use
  Company Number: US-BAYER-2019-158990

PATIENT
  Sex: Female

DRUGS (2)
  1. MIRENA [Suspect]
     Active Substance: LEVONORGESTREL
     Dosage: 20 MCG/24HR, CONT
     Route: 015
     Dates: start: 2018
  2. MIRENA [Suspect]
     Active Substance: LEVONORGESTREL

REACTIONS (6)
  - Menstrual disorder [Not Recovered/Not Resolved]
  - Vomiting [None]
  - Nausea [Not Recovered/Not Resolved]
  - Amenorrhoea [None]
  - General physical health deterioration [Not Recovered/Not Resolved]
  - Vaginal haemorrhage [Not Recovered/Not Resolved]

NARRATIVE: CASE EVENT DATE: 2019
